FAERS Safety Report 8287555-4 (Version None)
Quarter: 2012Q2

REPORT INFORMATION
  Report Type: 
  Country: None (occurrence: None)
  Receive Date: 20120411
  Receipt Date: 20120328
  Transmission Date: 20120825
  Serious: Yes (Other)
  Sender: FDA-Public Use
  Company Number: FK201200959

PATIENT
  Age: 79 Year
  Sex: Female

DRUGS (5)
  1. RITUXIMAB (RITUXIMAB) [Concomitant]
  2. CYCLOPHOSPHAMIDE [Concomitant]
  3. DOXORUBICIN HCL [Suspect]
     Indication: MANTLE CELL LYMPHOMA
     Dosage: 400 MG/M2, TOTAL
  4. VINCRISTINE [Concomitant]
  5. PREDNISONE TAB [Concomitant]

REACTIONS (6)
  - ANAEMIA [None]
  - NO THERAPEUTIC RESPONSE [None]
  - CARDIOMYOPATHY [None]
  - CARDIAC FAILURE [None]
  - PNEUMONIA [None]
  - ATRIAL FIBRILLATION [None]
